FAERS Safety Report 5388554-2 (Version None)
Quarter: 2007Q3

REPORT INFORMATION
  Report Type: 
  Country: None (occurrence: None)
  Receive Date: 20070711
  Receipt Date: 20070625
  Transmission Date: 20080115
  Serious: Yes (Hospitalization)
  Sender: FDA-Public Use
  Company Number: DSA_29689_2007

PATIENT
  Age: 66 Year
  Sex: Male

DRUGS (6)
  1. TEMESTA (TEMESTA) (NOT SPECIFIED) [Suspect]
     Dosage: ( 1 MG TID ORAL)
     Route: 048
  2. AVLOCARDYL (AVLOCARDYL LP) [Suspect]
     Dosage: (160 MG QD ORAL)
     Route: 048
  3. FLUOXETINE [Suspect]
     Dosage: (DF ORAL), (2 DF QD DF ORAL)
     Route: 048
     Dates: end: 20070325
  4. FLUOXETINE [Suspect]
     Dosage: (DF ORAL), (2 DF QD DF ORAL)
     Route: 048
     Dates: start: 20070326
  5. STILNOX /00914901/ (STILNOX) [Suspect]
     Dosage: (ORAL)
     Route: 048
  6. TERCIAN /00759301/ (TERCIAN) [Suspect]
     Dosage: (25 MG BID ORAL)
     Route: 048
     Dates: end: 20070315

REACTIONS (6)
  - AKINESIA [None]
  - BLOOD GLUCOSE INCREASED [None]
  - COORDINATION ABNORMAL [None]
  - FALL [None]
  - HYPERTONIA [None]
  - PARKINSONISM [None]
